FAERS Safety Report 10840841 (Version 1)
Quarter: 2015Q1

REPORT INFORMATION
  Report Type: Spontaneous
  Country: CA (occurrence: None)
  Receive Date: 20150218
  Receipt Date: 20150218
  Transmission Date: 20150721
  Serious: Yes (Hospitalization)
  Sender: FDA-Public Use
  Company Number: FK201500724

PATIENT
  Age: 66 Year
  Sex: Female

DRUGS (7)
  1. CARBAMAZEPIN (CARBAMAZEPINE) [Concomitant]
  2. VANCOMYCIN [Suspect]
     Active Substance: VANCOMYCIN
     Indication: PRODUCT USED FOR UNKNOWN INDICATION
  3. GENTAMICIN (GENTAMICIN) [Concomitant]
     Active Substance: GENTAMICIN
  4. PHENYTOIN (PHENYTOIN) [Concomitant]
     Active Substance: PHENYTOIN
  5. RANITIDINE [Concomitant]
     Active Substance: RANITIDINE\RANITIDINE HYDROCHLORIDE
  6. DIGOXIN (DIGOXIN) [Concomitant]
     Active Substance: DIGOXIN
  7. UNFRACTIONED HEPARIN (HEPARIN) [Concomitant]

REACTIONS (2)
  - Post procedural complication [None]
  - Immune thrombocytopenic purpura [None]
